FAERS Safety Report 6782827-4 (Version None)
Quarter: 2010Q2

REPORT INFORMATION
  Report Type: 
  Country: None (occurrence: None)
  Receive Date: 20100617
  Receipt Date: 20100608
  Transmission Date: 20101027
  Serious: Yes (Other)
  Sender: FDA-Public Use
  Company Number: 2010US002063

PATIENT
  Sex: Female

DRUGS (2)
  1. VESICARE (SOLIFENACIN) TABLETS [Suspect]
     Indication: URINARY TRACT DISORDER
     Dosage: 5MG, ORAL
     Route: 048
     Dates: start: 20070101
  2. UREX (NITROFURANTION) [Concomitant]

REACTIONS (8)
  - DRUG EXPOSURE DURING PREGNANCY [None]
  - GENITOURINARY OPERATION [None]
  - LOSS OF CONSCIOUSNESS [None]
  - NODULE [None]
  - PREGNANCY [None]
  - SURGICAL PROCEDURE REPEATED [None]
  - URINARY RETENTION [None]
  - URINARY TRACT PAIN [None]
